FAERS Safety Report 9631834 (Version 2)
Quarter: 2013Q4

REPORT INFORMATION
  Report Type: Spontaneous
  Country: DE (occurrence: DE)
  Receive Date: 20131018
  Receipt Date: 20131126
  Transmission Date: 20140711
  Serious: Yes (Hospitalization)
  Sender: FDA-Public Use
  Company Number: DE-JNJFOC-20131008915

PATIENT
  Age: 75 Year
  Sex: Male

DRUGS (6)
  1. XARELTO [Suspect]
     Indication: PRODUCT USED FOR UNKNOWN INDICATION
     Route: 048
     Dates: start: 201306, end: 201309
  2. SIMVA [Concomitant]
     Route: 065
  3. DIGIMERCK [Concomitant]
     Route: 065
  4. BISOPROLOL [Concomitant]
     Route: 065
  5. ENALAPRIL [Concomitant]
     Route: 065
  6. ERGENYL [Concomitant]
     Indication: CEREBROVASCULAR ACCIDENT PROPHYLAXIS
     Route: 065

REACTIONS (1)
  - Pericardial haemorrhage [Recovered/Resolved]
